FAERS Safety Report 7704878-5 (Version None)
Quarter: 2011Q3

REPORT INFORMATION
  Report Type: 
  Country: None (occurrence: None)
  Receive Date: 20110823
  Receipt Date: 20110808
  Transmission Date: 20111222
  Serious: Yes (Hospitalization)
  Sender: FDA-Public Use
  Company Number: DE-WATSON-2011-13104

PATIENT
  Age: 56 Year
  Sex: Male

DRUGS (1)
  1. CABERGOLINE [Suspect]
     Indication: PARKINSON'S DISEASE
     Dosage: 4 MG, DAILY

REACTIONS (4)
  - ARTERIOSCLEROSIS CORONARY ARTERY [None]
  - AORTIC VALVE INCOMPETENCE [None]
  - HEART VALVE INCOMPETENCE [None]
  - MITRAL VALVE INCOMPETENCE [None]
